FAERS Safety Report 19773300 (Version 1)
Quarter: 2021Q3

REPORT INFORMATION
  Report Type: Report from Study
  Country: GB (occurrence: GB)
  Receive Date: 20210901
  Receipt Date: 20210901
  Transmission Date: 20211014
  Serious: Yes (Other)
  Sender: FDA-Public Use
  Company Number: GB-CELLTRION INC.-2021GB005033

PATIENT

DRUGS (40)
  1. COCODAMOL [Concomitant]
     Active Substance: ACETAMINOPHEN\CODEINE PHOSPHATE
     Indication: ARTHRALGIA
     Dosage: UNK, 0.25 DAY
     Route: 048
     Dates: start: 20190123
  2. LOPERAMIDE [Concomitant]
     Active Substance: LOPERAMIDE
     Indication: DEEP VEIN THROMBOSIS
     Dosage: 2 MG
     Route: 048
     Dates: start: 20160516
  3. HYOSCINE?N?BUTYLBROMIDE [Concomitant]
     Active Substance: BUTYLSCOPOLAMINE BROMIDE
     Indication: SALIVARY HYPERSECRETION
     Dosage: 20 MG, 0.25 DAY
     Route: 048
     Dates: start: 20180619
  4. TRASTUZUMAB EMTANSINE [Suspect]
     Active Substance: ADO-TRASTUZUMAB EMTANSINE
     Dosage: 350 MG, EVERY 3 WEEKS, INITIALLY TREATMENT INTERRUPTED DUE TO DECREASE EJECTION FRACTION AND THEN TR
     Route: 042
     Dates: start: 20160629, end: 20180524
  5. CODEINE LINCTUS [Concomitant]
     Active Substance: CHLOROFORM\CODEINE PHOSPHATE\DRIMIA MARITIMA BULB
     Dosage: 30 MG, 0.25 DAY
     Route: 048
     Dates: start: 20191009
  6. PARACETAMOL [Concomitant]
     Active Substance: ACETAMINOPHEN
     Dosage: 1 G, 0.25 DAY
     Route: 048
  7. AMETOP [TETRACAINE] [Concomitant]
     Active Substance: TETRACAINE
     Dosage: 4 %, QD
     Route: 061
     Dates: start: 20160831
  8. TRASTUZUMAB. [Suspect]
     Active Substance: TRASTUZUMAB
     Dosage: 400 MG, EVERY 3 WEEKS
     Route: 042
     Dates: start: 20160606, end: 20160606
  9. DOMPERIDONE [Concomitant]
     Active Substance: DOMPERIDONE
     Dosage: 10 MG, 0.33 DAY
     Route: 048
     Dates: start: 20160512
  10. ZOLEDRONIC ACID. [Concomitant]
     Active Substance: ZOLEDRONIC ACID
     Indication: BACK PAIN
     Dosage: 4 MG, MONTHLY
     Route: 042
     Dates: start: 20180822
  11. CETIRIZINE [Concomitant]
     Active Substance: CETIRIZINE HYDROCHLORIDE
     Route: 048
  12. BISOPROLOL [Concomitant]
     Active Substance: BISOPROLOL
     Dosage: 5 MG, QD
     Route: 048
     Dates: start: 20181030
  13. TRASTUZUMAB EMTANSINE [Suspect]
     Active Substance: ADO-TRASTUZUMAB EMTANSINE
     Dosage: 180 MG, EVERY 3 WEEKS, DISEASE PROGRESSION, FURTHER ANTICANCER TREATMENT
     Route: 042
     Dates: start: 20180904, end: 20190830
  14. NYSTATIN. [Concomitant]
     Active Substance: NYSTATIN
     Dosage: DOSE: 10000 U, 0.25 DAY
     Route: 048
     Dates: start: 20160525
  15. MORPHINE SULFATE. [Concomitant]
     Active Substance: MORPHINE SULFATE
     Dosage: 5 MG
     Route: 048
     Dates: start: 20180822
  16. LANSOPRAZOLE. [Concomitant]
     Active Substance: LANSOPRAZOLE
     Indication: DYSPHAGIA
     Dosage: 30 MG, QD
     Route: 048
     Dates: start: 20180619
  17. TINZAPARIN [Concomitant]
     Active Substance: TINZAPARIN
     Dosage: 9000 IU, QD
     Route: 058
     Dates: start: 20190426
  18. TRAMADOL. [Concomitant]
     Active Substance: TRAMADOL
     Dosage: 50 MG, 0.25 DAY
     Route: 048
     Dates: start: 20160429
  19. SALBUTAMOL [Concomitant]
     Active Substance: ALBUTEROL
     Dosage: 0.5 DAY, INHEALED
  20. CYCLIZINE [Concomitant]
     Active Substance: CYCLIZINE
     Indication: DYSPHAGIA
     Dosage: 50 MG, 0.33 DAY
     Route: 048
     Dates: start: 20180619
  21. TRASTUZUMAB. [Suspect]
     Active Substance: TRASTUZUMAB
     Dosage: 400 MG, DOSE AMENDED DUE TO WEIGHT
     Route: 042
     Dates: start: 20160516, end: 20160516
  22. PERTUZUMAB. [Suspect]
     Active Substance: PERTUZUMAB
     Dosage: 420 MG, EVERY 3 WEEKS, INITIALLY TREATMENT INTERRUPTED DUE TO DECREASE EJECTION FRACTION THEN TREATM
     Route: 042
     Dates: start: 20160606, end: 20180524
  23. ZOPICLONE [Concomitant]
     Active Substance: ZOPICLONE
     Route: 048
  24. BUDESONIDE. [Concomitant]
     Active Substance: BUDESONIDE
     Dosage: 9 MG
     Route: 048
     Dates: start: 20191016
  25. TRASTUZUMAB. [Suspect]
     Active Substance: TRASTUZUMAB
     Indication: BREAST CANCER METASTATIC
     Dosage: 450 MG, LOADING DOSE
     Route: 042
     Dates: start: 20160516, end: 20160516
  26. PERTUZUMAB. [Suspect]
     Active Substance: PERTUZUMAB
     Indication: BREAST CANCER METASTATIC
     Dosage: 840 MG, LOADING DOSE
     Route: 042
     Dates: start: 20160516, end: 20160516
  27. DEXAMETHASONE. [Concomitant]
     Active Substance: DEXAMETHASONE
     Dosage: 8 MG, 0.5 DAY, PART OF CHEMOTHERAPY CYCLE
     Route: 048
     Dates: start: 20160512
  28. TRASTUZUMAB. [Suspect]
     Active Substance: TRASTUZUMAB
     Dosage: 350 MG, EVERY 3 WEEKS, DOSE AMENDED DUE TO WEIGHT
     Route: 042
     Dates: start: 20160629
  29. TINZAPARIN [Concomitant]
     Active Substance: TINZAPARIN
     Dosage: 1000 IU, QD
     Route: 058
     Dates: start: 20180619, end: 20181018
  30. TINZAPARIN [Concomitant]
     Active Substance: TINZAPARIN
     Dosage: 8000 IU, QD
     Route: 058
     Dates: start: 20181018, end: 20190426
  31. POTASSIUM [Concomitant]
     Active Substance: POTASSIUM
     Indication: BLOOD POTASSIUM DECREASED
     Dosage: 50 MMOL, QD
     Route: 042
     Dates: start: 20180619, end: 20180620
  32. IBUPROFEN. [Concomitant]
     Active Substance: IBUPROFEN
     Route: 048
  33. BENZYDAMINE HYDROCHLORIDE [Concomitant]
     Active Substance: BENZYDAMINE HYDROCHLORIDE
     Dosage: 15 ML, 0.25 DAY
     Route: 060
     Dates: start: 20160525
  34. TRASTUZUMAB EMTANSINE [Suspect]
     Active Substance: ADO-TRASTUZUMAB EMTANSINE
     Indication: BREAST CANCER METASTATIC
     Dosage: 450 MG, EVERY 3 WEEKS, LOADING DOSE
     Route: 042
     Dates: start: 20160516, end: 20160516
  35. TRASTUZUMAB EMTANSINE [Suspect]
     Active Substance: ADO-TRASTUZUMAB EMTANSINE
     Dosage: 400 MG, EVERY 3 WEEKS, DOSE AMMENED FOR WEIGHT
     Route: 042
     Dates: start: 20160606, end: 20160606
  36. MORPHINE SULFATE. [Concomitant]
     Active Substance: MORPHINE SULFATE
     Indication: BACK PAIN
     Dosage: 10 MG, HALF DAY
     Route: 048
     Dates: start: 20180822
  37. OMEPRAZOLE. [Concomitant]
     Active Substance: OMEPRAZOLE
     Dosage: 20 MG, 0.5 DAY
     Route: 048
  38. CALCICHEW D3 FORTE [Concomitant]
     Active Substance: CALCIUM\CHOLECALCIFEROL
     Dosage: UNK, QD
     Route: 048
     Dates: start: 20180822
  39. CO?AMOXICLAV [AMOXICILLIN;CLAVULANATE POTASSIUM] [Concomitant]
     Active Substance: AMOXICILLIN\CLAVULANATE POTASSIUM
     Indication: RESPIRATORY TRACT INFECTION
     Dosage: UNK
     Dates: start: 20171108, end: 20171115
  40. TINZAPARIN [Concomitant]
     Active Substance: TINZAPARIN
     Indication: DEEP VEIN THROMBOSIS
     Dosage: DOSE: 12000 UNIT, QD
     Route: 058
     Dates: start: 20160713

REACTIONS (2)
  - Ejection fraction decreased [Recovered/Resolved]
  - Off label use [Unknown]

NARRATIVE: CASE EVENT DATE: 20161027
